FAERS Safety Report 9206507 (Version 1)
Quarter: 2013Q1

REPORT INFORMATION
  Report Type: Spontaneous
  Country: US (occurrence: None)
  Receive Date: 20120709
  Receipt Date: 20120709
  Transmission Date: 20140127
  Serious: Yes (Other)
  Sender: FDA-Public Use
  Company Number: PHHY2011US61740

PATIENT
  Age: 73 Year
  Sex: Male
  Weight: 66.7 kg

DRUGS (1)
  1. GLEEVEC (IMATINIB) UNKNOWN [Suspect]
     Indication: CHRONIC MYELOID LEUKAEMIA
     Route: 048
     Dates: start: 20110301

REACTIONS (6)
  - Leukaemia recurrent [None]
  - Leukopenia [None]
  - Anaemia [None]
  - Hypoglycaemia [None]
  - Weight decreased [None]
  - Asthenia [None]
